FAERS Safety Report 6557390-3 (Version None)
Quarter: 2010Q1

REPORT INFORMATION
  Report Type: 
  Country: None (occurrence: None)
  Receive Date: 20100129
  Receipt Date: 20100127
  Transmission Date: 20100710
  Serious: Yes (Death)
  Sender: FDA-Public Use
  Company Number: PHHY2010CA03051

PATIENT
  Sex: Female

DRUGS (5)
  1. ACLASTA [Suspect]
     Indication: OSTEOPOROSIS
     Dosage: UNK
     Dates: start: 20090331
  2. PREDNISONE [Concomitant]
     Dosage: 10 MG, UNK
  3. AMLODIPINE [Concomitant]
     Dosage: 5-10 MG
  4. SYMBICORT [Concomitant]
  5. PHENOBARBITAL SRT [Concomitant]

REACTIONS (2)
  - COMPLICATIONS OF TRANSPLANTED LUNG [None]
  - LUNG TRANSPLANT [None]
